FAERS Safety Report 9120136 (Version 1)
Quarter: 2013Q1

REPORT INFORMATION
  Report Type: Spontaneous
  Country: CA (occurrence: CA)
  Receive Date: 20130226
  Receipt Date: 20130226
  Transmission Date: 20140127
  Serious: Yes (Hospitalization)
  Sender: FDA-Public Use
  Company Number: CA-COVIDIEN/TYCO HEALTHCARE/MALLINCKRODT-T201300957

PATIENT
  Age: 66 Year
  Sex: Female

DRUGS (7)
  1. PENNSAID [Suspect]
     Indication: OSTEOARTHRITIS
     Dosage: UNK
     Route: 061
     Dates: start: 2012, end: 201302
  2. SYNTHROID [Concomitant]
     Indication: OSTEOARTHRITIS
     Dosage: UNK
     Route: 048
     Dates: start: 2012, end: 201302
  3. FENTANYL [Concomitant]
     Dosage: UNK
     Route: 062
  4. NEXIUM                             /01479302/ [Concomitant]
     Dosage: UNK
     Route: 048
  5. IMOVANE [Concomitant]
     Dosage: UNK
     Route: 048
  6. MELOXICAM [Concomitant]
     Dosage: UNK
     Route: 065
  7. GLUCOSAMINE [Concomitant]
     Dosage: UNK
     Route: 061

REACTIONS (6)
  - Tachycardia [Recovered/Resolved]
  - Hypertension [Recovered/Resolved]
  - Chromaturia [Recovered/Resolved]
  - Chest pain [Recovered/Resolved]
  - Abdominal pain [Recovered/Resolved]
  - Local swelling [Recovered/Resolved]
